FAERS Safety Report 24922412 (Version 1)
Quarter: 2025Q1

REPORT INFORMATION
  Report Type: Spontaneous
  Country: US (occurrence: None)
  Receive Date: 20250203
  Receipt Date: 20250203
  Transmission Date: 20250409
  Serious: Yes (Hospitalization)
  Sender: FDA-CTU
  Company Number: None

PATIENT
  Age: 72 Year
  Sex: Female
  Weight: 55.3 kg

DRUGS (3)
  1. APIXABAN [Suspect]
     Active Substance: APIXABAN
     Indication: Pulmonary embolism
     Dosage: 2.5 MG TWICE A DAY ORAL
     Route: 048
     Dates: start: 20241231
  2. APIXABAN [Suspect]
     Active Substance: APIXABAN
     Indication: Deep vein thrombosis
  3. ADAGRASIB [Suspect]
     Active Substance: ADAGRASIB
     Dates: start: 20240823

REACTIONS (3)
  - Treatment failure [None]
  - Deep vein thrombosis [None]
  - Drug interaction [None]

NARRATIVE: CASE EVENT DATE: 20250126
